FAERS Safety Report 6856706 (Version 2)
Quarter: 2014Q2

REPORT INFORMATION
  Report Type: Spontaneous
  Country: US (occurrence: US)
  Receive Date: 20081217
  Receipt Date: 20140625
  Transmission Date: 20141212
  Serious: Yes (Other)
  Sender: FDA-Public Use
  Company Number: US-ASTRAZENECA-2008UW05506

PATIENT
  Age: 84 Year
  Sex: Female
  Weight: 81.6 kg

DRUGS (17)
  1. NEXIUM [Suspect]
     Indication: GASTROOESOPHAGEAL REFLUX DISEASE
     Route: 048
     Dates: start: 20040303
  2. CRESTOR [Suspect]
     Indication: BLOOD CHOLESTEROL INCREASED
     Route: 048
  3. PREMARIN [Concomitant]
  4. ESTROGEN HORMONES [Concomitant]
  5. ENALAPRIL/HCTZ [Concomitant]
     Indication: BLOOD PRESSURE ABNORMAL
     Dosage: 16-25 MG DAILY
     Route: 048
  6. TAZTIA XT [Concomitant]
     Indication: BLOOD PRESSURE ABNORMAL
     Route: 048
  7. LEVOTHYROXINE [Concomitant]
     Indication: THYROID DISORDER
     Route: 048
     Dates: end: 201405
  8. LEVOTHYROXINE [Concomitant]
     Indication: THYROID DISORDER
     Route: 048
     Dates: start: 201405
  9. PIROXICAM [Concomitant]
     Indication: ARTHRITIS
     Route: 048
     Dates: start: 2013
  10. ALPRAZOLAM [Concomitant]
     Indication: NERVOUS SYSTEM DISORDER
     Route: 048
     Dates: start: 2009
  11. FUROSEMIDE [Concomitant]
     Indication: DIURETIC THERAPY
     Route: 048
     Dates: start: 2004
  12. CALCIUM [Concomitant]
     Indication: CALCIUM DEFICIENCY
     Route: 048
  13. POTASSIUM CHLORIDE-KLOR-CON [Concomitant]
     Route: 048
  14. VITAMIN B12 [Concomitant]
     Dosage: DAILY
     Route: 048
  15. VITAMIN C [Concomitant]
     Route: 048
  16. VITAMIN D3 [Concomitant]
     Route: 048
  17. MULTIVITAMIN [Concomitant]
     Route: 048

REACTIONS (15)
  - Cataract [Unknown]
  - Spinal column stenosis [Not Recovered/Not Resolved]
  - Bone pain [Unknown]
  - Gastrooesophageal reflux disease [Unknown]
  - Malaise [Unknown]
  - Road traffic accident [Unknown]
  - Memory impairment [Not Recovered/Not Resolved]
  - Fall [Unknown]
  - Neck pain [Not Recovered/Not Resolved]
  - Ligament sprain [Unknown]
  - Ligament sprain [Unknown]
  - Thyroid disorder [Not Recovered/Not Resolved]
  - Musculoskeletal pain [Not Recovered/Not Resolved]
  - Pruritus [Recovered/Resolved]
  - Intentional product misuse [Unknown]
